FAERS Safety Report 13604009 (Version 1)
Quarter: 2017Q2

REPORT INFORMATION
  Report Type: Spontaneous
  Country: US (occurrence: US)
  Receive Date: 20170601
  Receipt Date: 20170601
  Transmission Date: 20170830
  Serious: No
  Sender: FDA-Public Use
  Company Number: None

PATIENT
  Age: 60 Year
  Sex: Female
  Weight: 56.25 kg

DRUGS (5)
  1. MAGNESIUM [Concomitant]
     Active Substance: MAGNESIUM
  2. CALCIUM PLUS VITAMIN D [Concomitant]
     Active Substance: CALCIUM\VITAMIN D
  3. VITAMIN C [Concomitant]
     Active Substance: ASCORBIC ACID
  4. IC RISEDRONATE SODIUM 150 MG TAB [Suspect]
     Active Substance: RISEDRONATE SODIUM
     Indication: OSTEOPOROSIS
     Dosage: ?          QUANTITY:1 TABLET(S);OTHER FREQUENCY:1 X MONTH;?
     Route: 048
     Dates: start: 20170102, end: 20170202
  5. MULTIVITAMIN AND MINERAL [Concomitant]

REACTIONS (8)
  - Loss of personal independence in daily activities [None]
  - Tremor [None]
  - Arthralgia [None]
  - Thirst [None]
  - Influenza like illness [None]
  - Myalgia [None]
  - Headache [None]
  - Feeling abnormal [None]

NARRATIVE: CASE EVENT DATE: 20170202
